FAERS Safety Report 5166380-7 (Version None)
Quarter: 2006Q4

REPORT INFORMATION
  Report Type: 
  Country: None (occurrence: None)
  Receive Date: 20061129
  Receipt Date: 20061121
  Transmission Date: 20070319
  Serious: Yes (Other)
  Sender: FDA-Public Use
  Company Number: 232901

PATIENT
  Age: 78 Year
  Sex: Female
  Weight: 59.9 kg

DRUGS (9)
  1. LUCENTIS [Suspect]
     Indication: MACULAR DEGENERATION
     Dosage: INTRAVITREAL
     Dates: start: 20060721
  2. PRESERVISION AREDS (ASCORBIC ACID, BETA CAROTENE, COPPER, VITAMIN E, Z [Concomitant]
  3. CRESTOR [Concomitant]
  4. NORVASC [Concomitant]
  5. ASPIRIN [Concomitant]
  6. CALCIUM (CALCIUM NOS) [Concomitant]
  7. VITAMIN D (CHOLECALCIFEROL) [Concomitant]
  8. POTASSIUM (POTASSIUM NOS) [Concomitant]
  9. VITAMIN B COMPLEX (VITAMIN B COMPLEX) [Concomitant]

REACTIONS (2)
  - CEREBRAL ARTERY STENOSIS [None]
  - TRANSIENT ISCHAEMIC ATTACK [None]
